FAERS Safety Report 12828017 (Version 3)
Quarter: 2016Q4

REPORT INFORMATION
  Report Type: Report from Study
  Country: BR (occurrence: BR)
  Receive Date: 20161007
  Receipt Date: 20161107
  Transmission Date: 20170207
  Serious: Yes (Hospitalization, Other)
  Sender: FDA-Public Use
  Company Number: PHHY2016BR135999

PATIENT
  Age: 34 Year
  Sex: Female
  Weight: 46 kg

DRUGS (2)
  1. EXJADE [Suspect]
     Active Substance: DEFERASIROX
     Indication: MYELODYSPLASTIC SYNDROME
     Dosage: 1000 MG, QD
     Route: 048
     Dates: start: 2012
  2. EXJADE [Suspect]
     Active Substance: DEFERASIROX
     Dosage: 500 MG, QD
     Route: 048

REACTIONS (17)
  - Pneumonia [Recovering/Resolving]
  - Diarrhoea [Recovered/Resolved]
  - Diarrhoea [Recovering/Resolving]
  - Pain [Recovering/Resolving]
  - Screaming [Unknown]
  - Serum ferritin increased [Not Recovered/Not Resolved]
  - Bone infarction [Recovering/Resolving]
  - Burning sensation [Recovering/Resolving]
  - Weight decreased [Recovering/Resolving]
  - Pain in extremity [Recovering/Resolving]
  - Neck pain [Unknown]
  - Pleural effusion [Recovering/Resolving]
  - Feeling abnormal [Unknown]
  - Anorectal disorder [Recovering/Resolving]
  - Wound [Unknown]
  - Diabetes mellitus [Recovered/Resolved]
  - Hypersomnia [Unknown]

NARRATIVE: CASE EVENT DATE: 201606
